FAERS Safety Report 24032130 (Version 1)
Quarter: 2024Q2

REPORT INFORMATION
  Report Type: Spontaneous
  Country: US (occurrence: None)
  Receive Date: 20240630
  Receipt Date: 20240630
  Transmission Date: 20240715
  Serious: No
  Sender: FDA-Public Use
  Company Number: 2024A141665

PATIENT
  Sex: Male

DRUGS (1)
  1. BYDUREON BCISE [Suspect]
     Active Substance: EXENATIDE
     Dates: start: 2024

REACTIONS (4)
  - Injection site haemorrhage [Unknown]
  - Multiple use of single-use product [Unknown]
  - Drug dose omission by device [Unknown]
  - Device malfunction [Unknown]
